FAERS Safety Report 8120804 (Version 3)
Quarter: 2013Q1

REPORT INFORMATION
  Report Type: Report from Study
  Country: US (occurrence: US)
  Receive Date: 20110906
  Receipt Date: 20130121
  Transmission Date: 20140127
  Serious: Yes (Death, Other)
  Sender: FDA-Public Use
  Company Number: US-ASTELLAS-2011US005347

PATIENT
  Sex: Female

DRUGS (1)
  1. ERLOTINIB TABLET [Suspect]
     Indication: LUNG CARCINOMA CELL TYPE UNSPECIFIED STAGE 0
     Dosage: 150 MG, UID/QD
     Route: 048
     Dates: start: 20110727

REACTIONS (5)
  - Drug ineffective [Unknown]
  - Inflammation [Not Recovered/Not Resolved]
  - Malignant neoplasm progression [Fatal]
  - Nausea [Not Recovered/Not Resolved]
  - Spinal pain [Not Recovered/Not Resolved]
